FAERS Safety Report 11168670 (Version 1)
Quarter: 2015Q2

REPORT INFORMATION
  Report Type: Spontaneous
  Country: IT (occurrence: IT)
  Receive Date: 20150605
  Receipt Date: 20150605
  Transmission Date: 20150821
  Serious: Yes (Other)
  Sender: FDA-Public Use
  Company Number: IT-ACTAVIS-2015-10065

PATIENT
  Age: 76 Year
  Sex: Male

DRUGS (2)
  1. OXALIPLATIN (UNKNOWN) [Suspect]
     Active Substance: OXALIPLATIN
     Indication: COLON CANCER
     Dosage: 190 MG, CYCLICAL
     Route: 042
     Dates: start: 20150302, end: 20150323
  2. CAPECITABINE (UNKNOWN) [Suspect]
     Active Substance: CAPECITABINE
     Indication: COLON CANCER
     Dosage: 2500 MG, CYCLICAL
     Route: 048
     Dates: start: 20150302, end: 20150323

REACTIONS (1)
  - Neutropenia [Recovered/Resolved]

NARRATIVE: CASE EVENT DATE: 20150319
